FAERS Safety Report 5487320-7 (Version None)
Quarter: 2007Q4

REPORT INFORMATION
  Report Type: 
  Country: None (occurrence: None)
  Receive Date: 20071015
  Receipt Date: 20070927
  Transmission Date: 20080405
  Serious: Yes (Other)
  Sender: FDA-Public Use
  Company Number: 2007S1009103

PATIENT
  Age: 25 Year
  Sex: Female
  Weight: 45.3597 kg

DRUGS (1)
  1. AMNESTEEM [Suspect]
     Indication: ACNE
     Dosage: 20 MG; DAILY; ORAL
     Route: 048
     Dates: start: 20070101, end: 20070101

REACTIONS (3)
  - DEPRESSION [None]
  - DIVORCED [None]
  - SUICIDAL IDEATION [None]
